FAERS Safety Report 4937552-9 (Version None)
Quarter: 2006Q1

REPORT INFORMATION
  Report Type: 
  Country: None (occurrence: None)
  Receive Date: 20060306
  Receipt Date: 20060223
  Transmission Date: 20060701
  Serious: Yes (Other)
  Sender: FDA-Public Use
  Company Number: S06-USA-00458-01

PATIENT
  Age: 36 Year
  Sex: Female
  Weight: 45.3597 kg

DRUGS (1)
  1. LEXAPRO [Suspect]
     Indication: DEPRESSION
     Dosage: 10 MG QD PO
     Route: 048
     Dates: start: 20050201

REACTIONS (6)
  - BLOOD CHOLESTEROL INCREASED [None]
  - BLOOD TRIGLYCERIDES INCREASED [None]
  - CHEST X-RAY ABNORMAL [None]
  - INSULIN-REQUIRING TYPE II DIABETES MELLITUS [None]
  - PLATELET COUNT INCREASED [None]
  - SINUSITIS [None]
